FAERS Safety Report 17405917 (Version 4)
Quarter: 2020Q4

REPORT INFORMATION
  Report Type: Spontaneous
  Country: US (occurrence: US)
  Receive Date: 20200212
  Receipt Date: 20201204
  Transmission Date: 20210113
  Serious: Yes (Hospitalization)
  Sender: FDA-Public Use
  Company Number: US-ROCHE-2544971

PATIENT
  Age: 3 Year
  Sex: Male

DRUGS (3)
  1. HEMLIBRA [Suspect]
     Active Substance: EMICIZUMAB-KXWH
     Indication: FACTOR VIII DEFICIENCY
     Dosage: FORM STRENGTH: 30 MG/ML
     Route: 058
     Dates: start: 20181018
  2. HEMLIBRA [Suspect]
     Active Substance: EMICIZUMAB-KXWH
     Dosage: FORM STRENGTH: 30 MG/ML
     Route: 058
     Dates: start: 20181018
  3. NUWIQ [Concomitant]
     Active Substance: ANTIHEMOPHILIC FACTOR, HUMAN RECOMBINANT

REACTIONS (9)
  - Complication associated with device [Unknown]
  - Lip haemorrhage [Unknown]
  - Eyelid bleeding [Unknown]
  - Haemorrhage [Unknown]
  - Swelling [Unknown]
  - Eye injury [Unknown]
  - Fall [Unknown]
  - Head injury [Unknown]
  - Respiratory tract infection [Unknown]

NARRATIVE: CASE EVENT DATE: 201909
